FAERS Safety Report 5407828-X (Version None)
Quarter: 2007Q3

REPORT INFORMATION
  Report Type: 
  Country: None (occurrence: None)
  Receive Date: 20070713
  Receipt Date: 20070503
  Transmission Date: 20080115
  Serious: No
  Sender: FDA-Public Use
  Company Number: 2007SP001637

PATIENT
  Sex: Female
  Weight: 56.6996 kg

DRUGS (9)
  1. LUNESTA [Suspect]
     Indication: INSOMNIA
     Dosage: 2 MG;HS;ORAL; 3 MG;HS;ORAL; 2 MG;HS;ORAL
     Route: 048
     Dates: start: 20050101, end: 20070415
  2. LUNESTA [Suspect]
     Indication: INSOMNIA
     Dosage: 2 MG;HS;ORAL; 3 MG;HS;ORAL; 2 MG;HS;ORAL
     Route: 048
     Dates: start: 20070416, end: 20070417
  3. LUNESTA [Suspect]
     Indication: INSOMNIA
     Dosage: 2 MG;HS;ORAL; 3 MG;HS;ORAL; 2 MG;HS;ORAL
     Route: 048
     Dates: start: 20070418
  4. METOPROLOL SUCCINATE [Concomitant]
  5. PLAVIX [Concomitant]
  6. COZAAR [Concomitant]
  7. PANTOPRAZOLE SODIUM [Concomitant]
  8. CYMBALTA [Concomitant]
  9. XANAX [Concomitant]

REACTIONS (1)
  - NIGHTMARE [None]
